FAERS Safety Report 5429306-4 (Version None)
Quarter: 2007Q4

REPORT INFORMATION
  Report Type: 
  Country: None (occurrence: None)
  Receive Date: 20070827
  Receipt Date: 20070817
  Transmission Date: 20080405
  Serious: Yes (Other)
  Sender: FDA-Public Use
  Company Number: 107#03#2007-03051

PATIENT
  Age: 46 Year
  Sex: Female

DRUGS (4)
  1. MIRTAZAPINE [Suspect]
     Indication: ANXIETY
     Dosage: 15MG, ORAL
     Route: 048
     Dates: start: 20070712, end: 20070715
  2. MIRTAZAPINE [Suspect]
     Indication: DEPRESSION
     Dosage: 15MG, ORAL
     Route: 048
     Dates: start: 20070712, end: 20070715
  3. DIAZEPAM [Concomitant]
  4. TRAMADOL HCL [Concomitant]

REACTIONS (3)
  - CONFUSIONAL STATE [None]
  - DYSPHASIA [None]
  - MYALGIA [None]
